FAERS Safety Report 5162277-7 (Version None)
Quarter: 2006Q4

REPORT INFORMATION
  Report Type: 
  Country: None (occurrence: None)
  Receive Date: 20060919
  Receipt Date: 20060616
  Transmission Date: 20070319
  Serious: No
  Sender: FDA-Public Use
  Company Number: 2006US001412

PATIENT
  Age: 75 Year
  Sex: Female

DRUGS (4)
  1. VESICARE [Suspect]
     Indication: BLADDER DISCOMFORT
     Dosage: ORAL
     Route: 048
     Dates: start: 20060601
  2. PREVACID [Concomitant]
  3. LIPITOR [Concomitant]
  4. CALCIUM CITRATE (CALCIUM CITRATE) [Concomitant]

REACTIONS (1)
  - MYALGIA [None]
